FAERS Safety Report 9374427 (Version 1)
Quarter: 2013Q2

REPORT INFORMATION
  Report Type: Spontaneous
  Country: CN (occurrence: CN)
  Receive Date: 20130628
  Receipt Date: 20130628
  Transmission Date: 20140414
  Serious: Yes (Hospitalization)
  Sender: FDA-Public Use
  Company Number: CN-JNJFOC-20130613171

PATIENT
  Age: 23 Year
  Sex: Female

DRUGS (2)
  1. DUROGESIC D-TRANS [Suspect]
     Indication: ABORTION INDUCED
     Route: 062
     Dates: start: 20120207, end: 20120207
  2. MISOPROSTOL [Suspect]
     Indication: ABORTION INDUCED
     Route: 067

REACTIONS (5)
  - Nausea [Recovered/Resolved]
  - Vomiting [Recovered/Resolved]
  - Off label use [Unknown]
  - Inappropriate schedule of drug administration [Unknown]
  - Exposure during pregnancy [Unknown]
